FAERS Safety Report 10511362 (Version 1)
Quarter: 2014Q3

REPORT INFORMATION
  Report Type: Spontaneous
  Country: US (occurrence: None)
  Receive Date: 20140915
  Receipt Date: 20140915
  Transmission Date: 20150326
  Serious: Yes (Other)
  Sender: FDA-Public Use
  Company Number: 2014-US-008211

PATIENT
  Age: 32 Year
  Sex: Female
  Weight: 42.6 kg

DRUGS (3)
  1. ALBUTEROL (SALBUTAMOL SULFATE) [Concomitant]
  2. RITUXIMAB [Concomitant]
     Active Substance: RITUXIMAB
  3. XYREM [Suspect]
     Active Substance: SODIUM OXYBATE
     Indication: HYPERSOMNIA
     Route: 048
     Dates: start: 201303, end: 2013

REACTIONS (5)
  - Hyperhidrosis [None]
  - Off label use [None]
  - Weight decreased [None]
  - Nausea [None]
  - Vomiting [None]

NARRATIVE: CASE EVENT DATE: 201303
